FAERS Safety Report 9433454 (Version 2)
Quarter: 2014Q3

REPORT INFORMATION
  Report Type: Spontaneous
  Country: US (occurrence: US)
  Receive Date: 20130731
  Receipt Date: 20140722
  Transmission Date: 20150326
  Serious: Yes (Hospitalization, Other)
  Sender: FDA-Public Use
  Company Number: US-009507513-1307USA017163

PATIENT
  Sex: Female

DRUGS (1)
  1. NUVARING [Suspect]
     Active Substance: ETHINYL ESTRADIOL\ETONOGESTREL
     Indication: CONTRACEPTION
     Dosage: UNK
     Route: 067
     Dates: start: 200508, end: 20051026

REACTIONS (10)
  - Pulmonary embolism [Unknown]
  - Kidney infection [Unknown]
  - Laparotomy [Unknown]
  - Embolism venous [Unknown]
  - Vaginal haemorrhage [Unknown]
  - Urinary tract infection [Unknown]
  - Coagulopathy [Unknown]
  - Klebsiella infection [Unknown]
  - Hepatic cyst [Unknown]
  - Breast cyst [Unknown]

NARRATIVE: CASE EVENT DATE: 200508
